FAERS Safety Report 9155920 (Version 1)
Quarter: 2013Q1

REPORT INFORMATION
  Report Type: Spontaneous
  Country: IT (occurrence: IT)
  Receive Date: 20130311
  Receipt Date: 20130311
  Transmission Date: 20140127
  Serious: Yes (Life-Threatening)
  Sender: FDA-Public Use
  Company Number: PHHY2013IT023321

PATIENT
  Age: 53 Year
  Sex: Female

DRUGS (2)
  1. OXALIPLATIN SANDOZ [Suspect]
     Indication: COLON CANCER METASTATIC
     Dosage: 154 MG, CYCLIC DOSE
     Route: 042
     Dates: start: 20120801, end: 20130213
  2. CAMPTO [Suspect]
     Indication: COLON CANCER METASTATIC
     Dosage: 299 MG, CYCLIC DOSE
     Route: 042
     Dates: start: 20120602

REACTIONS (6)
  - Oxygen saturation decreased [Recovering/Resolving]
  - Abdominal pain upper [Recovering/Resolving]
  - Dyspnoea [Recovering/Resolving]
  - Erythema [Recovering/Resolving]
  - Tremor [Recovering/Resolving]
  - Vomiting [Recovering/Resolving]
